FAERS Safety Report 22388739 (Version 1)
Quarter: 2023Q2

REPORT INFORMATION
  Report Type: Report from Study
  Country: CN (occurrence: CN)
  Receive Date: 20230531
  Receipt Date: 20230531
  Transmission Date: 20230722
  Serious: Yes (Death)
  Sender: FDA-Public Use
  Company Number: CN-ELI_LILLY_AND_COMPANY-CN202305015886

PATIENT

DRUGS (3)
  1. PEMETREXED [Suspect]
     Active Substance: PEMETREXED
     Indication: Non-small cell lung cancer metastatic
     Dosage: 500 MG/M2, CYCLICAL
     Route: 042
  2. CISPLATIN [Concomitant]
     Active Substance: CISPLATIN
     Indication: Non-small cell lung cancer metastatic
     Dosage: 75 MG/M2, CYCLICAL
     Route: 042
  3. SINTILIMAB [Concomitant]
     Active Substance: SINTILIMAB
     Indication: Non-small cell lung cancer metastatic
     Dosage: 200 MG
     Route: 042

REACTIONS (1)
  - Pneumonitis [Fatal]
